FAERS Safety Report 6570418-X (Version None)
Quarter: 2010Q1

REPORT INFORMATION
  Report Type: 
  Country: None (occurrence: None)
  Receive Date: 20100204
  Receipt Date: 20090318
  Transmission Date: 20100710
  Serious: No
  Sender: FDA-Public Use
  Company Number: A0774020A

PATIENT
  Age: 40 Year
  Sex: Female

DRUGS (11)
  1. ARIXTRA [Suspect]
     Dosage: 7.5MG PER DAY
     Route: 058
     Dates: start: 20090117
  2. OXYCONTIN [Concomitant]
  3. PERCOCET [Concomitant]
  4. ACTIQ [Concomitant]
  5. SYNTHROID [Concomitant]
  6. TOPAMAX [Concomitant]
  7. NEURONTIN [Concomitant]
  8. LUVOX [Concomitant]
  9. LAMICTAL [Concomitant]
  10. RESTORIL [Concomitant]
  11. XANAX [Concomitant]

REACTIONS (1)
  - DRUG SCREEN FALSE POSITIVE [None]
